FAERS Safety Report 8776977 (Version 2)
Quarter: 2013Q4

REPORT INFORMATION
  Report Type: Spontaneous
  Country: US (occurrence: US)
  Receive Date: 20120911
  Receipt Date: 20131101
  Transmission Date: 20140711
  Serious: No
  Sender: FDA-Public Use
  Company Number: US-009507513-1209USA002569

PATIENT
  Sex: Female

DRUGS (1)
  1. IMPLANON [Suspect]

REACTIONS (1)
  - Device breakage [Unknown]
